FAERS Safety Report 24428057 (Version 1)
Quarter: 2024Q4

REPORT INFORMATION
  Report Type: Report from Study
  Country: IT (occurrence: IT)
  Receive Date: 20241011
  Receipt Date: 20241011
  Transmission Date: 20250114
  Serious: Yes (Death)
  Sender: JOHNSON AND JOHNSON
  Company Number: None

PATIENT
  Age: 77 Year
  Sex: Female
  Weight: 65 kg

DRUGS (4)
  1. DARZALEX [Suspect]
     Active Substance: DARATUMUMAB
     Indication: Plasma cell myeloma
     Dosage: I INFUSION
     Route: 042
     Dates: start: 20240930, end: 20240930
  2. BORTEZOMIB [Suspect]
     Active Substance: BORTEZOMIB
     Indication: Plasma cell myeloma
     Route: 058
     Dates: start: 20240930, end: 20240930
  3. FORMISTIN [Concomitant]
     Indication: Chemotherapy side effect prophylaxis
     Route: 048
     Dates: start: 20240929, end: 20240929
  4. PREDNISONE ACETATE [Concomitant]
     Active Substance: PREDNISONE ACETATE
     Indication: Chemotherapy side effect prophylaxis
     Route: 048
     Dates: start: 20240929, end: 20240929

REACTIONS (5)
  - Back pain [Fatal]
  - Cardio-respiratory arrest [Fatal]
  - Chest pain [Fatal]
  - Dyspnoea [Fatal]
  - Chills [Fatal]

NARRATIVE: CASE EVENT DATE: 20240930
